FAERS Safety Report 6425693-9 (Version None)
Quarter: 2009Q4

REPORT INFORMATION
  Report Type: 
  Country: None (occurrence: None)
  Receive Date: 20091103
  Receipt Date: 20091021
  Transmission Date: 20100525
  Serious: Yes (Other)
  Sender: FDA-Public Use
  Company Number: PHFR2007GB02363

PATIENT
  Sex: Female

DRUGS (5)
  1. CLOZARIL [Suspect]
     Indication: SCHIZOPHRENIA
     Dosage: 100MG MANE, 200MG NOCTE
     Route: 048
     Dates: start: 20070702, end: 20070802
  2. CLOZARIL [Suspect]
     Dosage: 200
     Dates: start: 20090106
  3. OLANZAPINE [Concomitant]
     Dosage: 10 MG, BID
     Route: 048
  4. OLANZAPINE [Concomitant]
     Dosage: 5 MG, BID
     Route: 048
     Dates: start: 20070703, end: 20070713
  5. OLANZAPINE [Concomitant]
     Dosage: 5 MG, QD
     Route: 048
     Dates: start: 20070714, end: 20070716

REACTIONS (11)
  - ALANINE AMINOTRANSFERASE INCREASED [None]
  - BLOOD ALKALINE PHOSPHATASE INCREASED [None]
  - BLOOD BILIRUBIN INCREASED [None]
  - CHOLELITHIASIS [None]
  - DIARRHOEA [None]
  - GAMMA-GLUTAMYLTRANSFERASE INCREASED [None]
  - HEPATITIS C [None]
  - LIVER FUNCTION TEST ABNORMAL [None]
  - NEUTROPHIL COUNT INCREASED [None]
  - VOMITING [None]
  - WHITE BLOOD CELL COUNT INCREASED [None]
